FAERS Safety Report 8460326-1 (Version None)
Quarter: 2012Q2

REPORT INFORMATION
  Report Type: 
  Country: None (occurrence: None)
  Receive Date: 20120622
  Receipt Date: 20120622
  Transmission Date: 20120825
  Serious: Yes (Hospitalization, Other)
  Sender: FDA-Public Use
  Company Number: CH-PFIZER INC-2010US-32624

PATIENT
  Age: 35 Year
  Sex: Female
  Weight: 55 kg

DRUGS (1)
  1. VERAPAMIL HCL [Suspect]
     Indication: COMPLICATED MIGRAINE
     Dosage: 20 TABLETS
     Route: 048

REACTIONS (10)
  - CARDIOTOXICITY [None]
  - ANURIA [None]
  - OFF LABEL USE [None]
  - GRAND MAL CONVULSION [None]
  - TOXICITY TO VARIOUS AGENTS [None]
  - ILEUS PARALYTIC [None]
  - SUICIDE ATTEMPT [None]
  - RENAL FAILURE [None]
  - PULMONARY OEDEMA [None]
  - OVERDOSE [None]
